FAERS Safety Report 7825450-2 (Version None)
Quarter: 2011Q4

REPORT INFORMATION
  Report Type: 
  Country: None (occurrence: None)
  Receive Date: 20111019
  Receipt Date: 20111012
  Transmission Date: 20120403
  Serious: Yes (Other)
  Sender: FDA-Public Use
  Company Number: US-AMGEN-USASP2011052806

PATIENT
  Age: 86 Year
  Sex: Female

DRUGS (5)
  1. AMLODIPINE [Concomitant]
  2. PLAVIX [Concomitant]
  3. PROLIA [Suspect]
     Indication: OSTEOPOROSIS POSTMENOPAUSAL
     Dosage: UNK
     Dates: start: 20110922
  4. LISINOPRIL [Concomitant]
  5. ASPIRIN [Concomitant]

REACTIONS (4)
  - RASH GENERALISED [None]
  - PAIN OF SKIN [None]
  - HYPERSENSITIVITY [None]
  - SKIN EXFOLIATION [None]
